FAERS Safety Report 21482971 (Version 1)
Quarter: 2022Q4

REPORT INFORMATION
  Report Type: Spontaneous
  Country: DE (occurrence: DE)
  Receive Date: 20221020
  Receipt Date: 20221020
  Transmission Date: 20230113
  Serious: Yes (Hospitalization, Other)
  Sender: FDA-Public Use
  Company Number: DE-002147023-NVSC2022DE233548

PATIENT
  Sex: Male

DRUGS (2)
  1. LUCENTIS [Suspect]
     Active Substance: RANIBIZUMAB
     Indication: Product used for unknown indication
     Dosage: QMO
     Route: 047
     Dates: start: 202201
  2. LUCENTIS [Suspect]
     Active Substance: RANIBIZUMAB
     Dosage: BOTH EYES
     Route: 047
     Dates: start: 202210

REACTIONS (5)
  - Confusional state [Not Recovered/Not Resolved]
  - Cerebrovascular accident [Recovered/Resolved]
  - Feeling abnormal [Not Recovered/Not Resolved]
  - Hypoglycaemia [Not Recovered/Not Resolved]
  - Disease progression [Unknown]

NARRATIVE: CASE EVENT DATE: 20220101
